FAERS Safety Report 10873174 (Version 1)
Quarter: 2015Q1

REPORT INFORMATION
  Report Type: Spontaneous
  Country: GB (occurrence: GB)
  Receive Date: 20150227
  Receipt Date: 20150227
  Transmission Date: 20150721
  Serious: Yes (Other)
  Sender: FDA-Public Use
  Company Number: GB-ROCHE-1543005

PATIENT
  Age: 24 Year
  Sex: Female
  Weight: 76.2 kg

DRUGS (4)
  1. NAPROSYN [Suspect]
     Active Substance: NAPROXEN
     Indication: NEURALGIA
     Route: 048
     Dates: start: 20121127, end: 20121224
  2. NORETHINDRONE AND ETHINYL ESTRADIOL [Concomitant]
     Active Substance: ETHINYL ESTRADIOL\NORETHINDRONE
     Route: 065
  3. GABAPENTIN. [Concomitant]
     Active Substance: GABAPENTIN
     Route: 065
  4. VITAMIN C [Concomitant]
     Active Substance: ASCORBIC ACID
     Route: 065

REACTIONS (9)
  - Paraesthesia [Not Recovered/Not Resolved]
  - Feeling abnormal [Recovered/Resolved]
  - Pain [Unknown]
  - Asthenia [Not Recovered/Not Resolved]
  - Visual impairment [Not Recovered/Not Resolved]
  - Confusional state [Unknown]
  - Hypoaesthesia [Not Recovered/Not Resolved]
  - Headache [Recovered/Resolved]
  - Dysstasia [Unknown]
